FAERS Safety Report 4952238-2 (Version None)
Quarter: 2006Q1

REPORT INFORMATION
  Report Type: 
  Country: None (occurrence: None)
  Receive Date: 20060314
  Receipt Date: 20060309
  Transmission Date: 20060701
  Serious: Yes (Hospitalization, Disabling)
  Sender: FDA-Public Use
  Company Number: SEWYE443402MAR06

PATIENT
  Age: 14 Year
  Sex: Male

DRUGS (1)
  1. REFACTO [Suspect]
     Indication: FACTOR VII DEFICIENCY
     Dosage: SEE IMAGE, INTRAVENOUS
     Route: 042
     Dates: start: 20060101, end: 20060101

REACTIONS (4)
  - DRUG EFFECT DECREASED [None]
  - FACTOR VIII INHIBITION [None]
  - HAEMORRHAGE [None]
  - MUSCLE HAEMORRHAGE [None]
